FAERS Safety Report 13371974 (Version 2)
Quarter: 2017Q2

REPORT INFORMATION
  Report Type: Report from Study
  Country: None (occurrence: US)
  Receive Date: 20170326
  Receipt Date: 20170515
  Transmission Date: 20170830
  Serious: Yes (Hospitalization, Other)
  Sender: FDA-Public Use
  Company Number: US-ABBVIE-17K-163-1918862-00

PATIENT
  Sex: Female

DRUGS (3)
  1. TRAMADOL. [Concomitant]
     Active Substance: TRAMADOL
     Indication: PAIN IN EXTREMITY
  2. HUMIRA [Suspect]
     Active Substance: ADALIMUMAB
     Route: 058
     Dates: start: 201701
  3. HUMIRA [Suspect]
     Active Substance: ADALIMUMAB
     Indication: RHEUMATOID ARTHRITIS
     Route: 058
     Dates: start: 2014, end: 201611

REACTIONS (6)
  - Hip arthroplasty [Unknown]
  - Rheumatoid arthritis [Recovered/Resolved]
  - Procedural pain [Unknown]
  - Pain in extremity [Not Recovered/Not Resolved]
  - Blood glucose decreased [Recovered/Resolved]
  - Diabetic coma [Unknown]

NARRATIVE: CASE EVENT DATE: 2016
